FAERS Safety Report 14511071 (Version 2)
Quarter: 2018Q1

REPORT INFORMATION
  Report Type: Spontaneous
  Country: BR (occurrence: BR)
  Receive Date: 20180209
  Receipt Date: 20180214
  Transmission Date: 20180509
  Serious: Yes (Hospitalization)
  Sender: FDA-Public Use
  Company Number: BR-PFIZER INC-2018051239

PATIENT
  Age: 59 Year
  Sex: Male

DRUGS (1)
  1. SUTENT [Suspect]
     Active Substance: SUNITINIB MALATE
     Dosage: UNK, CYCLIC (14 DAYS ON AND 7 DAYS RESTING)
     Route: 048
     Dates: start: 20180119, end: 20180122

REACTIONS (17)
  - Platelet count decreased [Recovered/Resolved]
  - Eye swelling [Recovered/Resolved]
  - Infection [Recovered/Resolved]
  - Neoplasm progression [Recovering/Resolving]
  - Decreased appetite [Recovering/Resolving]
  - Yellow skin [Recovering/Resolving]
  - Skin discolouration [Recovering/Resolving]
  - Anal haemorrhage [Unknown]
  - Conjunctivitis [Recovering/Resolving]
  - Paronychia [Recovering/Resolving]
  - Asthenia [Recovering/Resolving]
  - Pain [Recovering/Resolving]
  - Oral discomfort [Recovering/Resolving]
  - Blood glucose fluctuation [Recovered/Resolved]
  - Wound [Recovering/Resolving]
  - Confusional state [Not Recovered/Not Resolved]
  - Nasal disorder [Recovering/Resolving]

NARRATIVE: CASE EVENT DATE: 201801
